FAERS Safety Report 25665628 (Version 1)
Quarter: 2025Q3

REPORT INFORMATION
  Report Type: Spontaneous
  Country: US (occurrence: None)
  Receive Date: 20250810
  Receipt Date: 20250810
  Transmission Date: 20251020
  Serious: Yes (Other)
  Sender: FDA-CTU
  Company Number: None

PATIENT
  Age: 30 Year
  Sex: Male
  Weight: 96.75 kg

DRUGS (2)
  1. EQUATE PAIN RELIEVING CREAM LIDOCAINE [Suspect]
     Active Substance: LIDOCAINE HYDROCHLORIDE
     Indication: Pain
     Dosage: FREQUENCY : EVERY 4 HOURS;?
     Route: 061
     Dates: start: 20250810, end: 20250810
  2. EQUATE PAIN RELIEVING CREAM LIDOCAINE [Suspect]
     Active Substance: LIDOCAINE HYDROCHLORIDE
     Indication: Injury

REACTIONS (3)
  - Pain [None]
  - Erythema [None]
  - Swelling [None]

NARRATIVE: CASE EVENT DATE: 20250810
